FAERS Safety Report 6439266-5 (Version None)
Quarter: 2009Q4

REPORT INFORMATION
  Report Type: 
  Country: None (occurrence: None)
  Receive Date: 20091110
  Receipt Date: 20091026
  Transmission Date: 20100525
  Serious: Yes (Death, Hospitalization)
  Sender: FDA-Public Use
  Company Number: 2009AC000254

PATIENT
  Age: 84 Year
  Sex: Female

DRUGS (21)
  1. DIGOXIN [Suspect]
     Dosage: .125 MG;QD;PO
     Route: 048
  2. ASPIRIN [Concomitant]
  3. ENSURE [Concomitant]
  4. CARVEDILOL [Concomitant]
  5. CIPROFLOXACIN [Concomitant]
  6. LISINOPRIL [Concomitant]
  7. MULTI-VITAMINS [Concomitant]
  8. PLAVIX [Concomitant]
  9. POTASSIUM [Concomitant]
  10. XENADERM [Concomitant]
  11. TOLNAPTATE [Concomitant]
  12. SIMVASTATIN [Concomitant]
  13. SODIUM CHLORIDE [Concomitant]
  14. ZAROXOLYN [Concomitant]
  15. ALDACTONE [Concomitant]
  16. LIPITOR [Concomitant]
  17. SPIRONOLACTONE [Concomitant]
  18. METOLAZONE [Concomitant]
  19. FUROSEMIDE [Concomitant]
  20. RAMIPRIL [Concomitant]
  21. POTASSIUM CHLORIDE [Concomitant]

REACTIONS (18)
  - ANXIETY [None]
  - APNOEA [None]
  - ARTERIOSCLEROSIS CORONARY ARTERY [None]
  - ATRIAL FIBRILLATION [None]
  - BRADYCARDIA [None]
  - CARDIAC FAILURE CONGESTIVE [None]
  - CONFUSIONAL STATE [None]
  - DEMENTIA [None]
  - DYSPNOEA [None]
  - ECONOMIC PROBLEM [None]
  - HYPONATRAEMIA [None]
  - LETHARGY [None]
  - MULTIPLE INJURIES [None]
  - OEDEMA PERIPHERAL [None]
  - PAIN [None]
  - PNEUMONIA [None]
  - PULMONARY HILUM MASS [None]
  - THERAPEUTIC AGENT TOXICITY [None]
